FAERS Safety Report 4650847-1 (Version None)
Quarter: 2005Q2

REPORT INFORMATION
  Report Type: 
  Country: None (occurrence: None)
  Receive Date: 20050429
  Receipt Date: 20050413
  Transmission Date: 20051028
  Serious: Yes (Life-Threatening, Hospitalization)
  Sender: FDA-Public Use
  Company Number: 2005-BP-06141RO

PATIENT
  Age: 2 Year
  Sex: Male
  Weight: 11.2 kg

DRUGS (2)
  1. PROPRANOLOL HYDROCHLORIDE [Suspect]
     Indication: WOLFF-PARKINSON-WHITE SYNDROME
     Dosage: 1.4 ML (5.6MG) QID (20 MG), PO
     Route: 048
     Dates: start: 20031201
  2. AMIODARONE HYDROCHLORIDE 40MG/ML (AMIODARONE HYDROCHLORIDE) [Concomitant]

REACTIONS (3)
  - COMA [None]
  - CONVULSION [None]
  - HYPOGLYCAEMIA [None]
